FAERS Safety Report 8846250 (Version 1)
Quarter: 2012Q4

REPORT INFORMATION
  Report Type: 
  Country: US (occurrence: US)
  Receive Date: 20121017
  Receipt Date: 20121017
  Transmission Date: 20130627
  Serious: Yes (Hospitalization)
  Sender: FDA-Public Use
  Company Number: US-BRISTOL-MYERS SQUIBB COMPANY-17027947

PATIENT
  Age: 79 Year
  Sex: Female
  Weight: 52 kg

DRUGS (2)
  1. ORENCIA [Suspect]
     Indication: RHEUMATOID ARTHRITIS
     Dosage: last inf: May12
     Dates: end: 201205
  2. FOSAMAX [Suspect]

REACTIONS (3)
  - Cerebrovascular accident [Unknown]
  - Localised infection [Recovered/Resolved]
  - Weight decreased [Unknown]
